FAERS Safety Report 7411945-2 (Version None)
Quarter: 2011Q2

REPORT INFORMATION
  Report Type: 
  Country: None (occurrence: None)
  Receive Date: 20110405
  Receipt Date: 20110323
  Transmission Date: 20111010
  Serious: Yes (Other)
  Sender: FDA-Public Use
  Company Number: 2011AP000524

PATIENT
  Age: 52 Year
  Sex: Male

DRUGS (6)
  1. SALMETEROL XINAFOATE (SALMETEROL XINAFOATE) [Concomitant]
  2. RISPERIDONE [Suspect]
     Indication: BIPOLAR DISORDER
     Dates: start: 20070101
  3. FLUTICASONE PROPIONATE [Concomitant]
  4. ALBUTEROL SULFATE [Concomitant]
  5. SALBUTAMOL SULFATE (SALBUTAMOL SULFATE) [Concomitant]
  6. VALPROATE SODIUM [Suspect]
     Indication: BIPOLAR DISORDER
     Dosage: 2 GM, QD, PO
     Route: 048
     Dates: start: 20040101

REACTIONS (1)
  - MEMORY IMPAIRMENT [None]
